FAERS Safety Report 7431788-3 (Version None)
Quarter: 2011Q2

REPORT INFORMATION
  Report Type: 
  Country: None (occurrence: None)
  Receive Date: 20110422
  Receipt Date: 20110408
  Transmission Date: 20111010
  Serious: Yes (Other)
  Sender: FDA-Public Use
  Company Number: CA-JNJFOC-20110404518

PATIENT
  Sex: Female
  Weight: 61.24 kg

DRUGS (5)
  1. VENTOLIN [Concomitant]
     Indication: ASTHMA
     Route: 048
  2. HUMIRA [Concomitant]
     Indication: CROHN'S DISEASE
     Route: 050
  3. TRAMADOL HCL [Concomitant]
     Indication: PSEUDOCYST
     Route: 048
  4. FLOVENT [Concomitant]
     Indication: ASTHMA
     Route: 048
  5. REMICADE [Suspect]
     Indication: CROHN'S DISEASE
     Dosage: 15 INFUSIONS
     Route: 042

REACTIONS (4)
  - VAGINAL ABSCESS [None]
  - DRUG EXPOSURE DURING PREGNANCY [None]
  - ANAL ABSCESS [None]
  - HEADACHE [None]
